FAERS Safety Report 6434711-3 (Version None)
Quarter: 2009Q4

REPORT INFORMATION
  Report Type: 
  Country: None (occurrence: None)
  Receive Date: 20091109
  Receipt Date: 20091109
  Transmission Date: 20100525
  Serious: Yes (Other)
  Sender: FDA-Public Use
  Company Number: None

PATIENT
  Age: 65 Year
  Sex: Male
  Weight: 90.7194 kg

DRUGS (2)
  1. SULFAMETHOXAZOLE AND TRIMETHOPRIM [Suspect]
     Indication: URINARY TRACT INFECTION
     Dosage: 1 2 X DAILY PO ONCE ONCE
     Route: 048
     Dates: start: 20090917, end: 20090917
  2. SULFAMETHOXAZOLE AND TRIMETHOPRIM [Suspect]
     Indication: URINARY TRACT INFECTION
     Dosage: 1 2 X DAILY PO ONCE ONCE
     Route: 048
     Dates: start: 20090922, end: 20090922

REACTIONS (8)
  - ARTHRALGIA [None]
  - BLOOD PRESSURE INCREASED [None]
  - CHILLS [None]
  - DYSSTASIA [None]
  - MUSCLE SPASMS [None]
  - MYALGIA [None]
  - PAIN IN EXTREMITY [None]
  - PYREXIA [None]
